FAERS Safety Report 7536548-0 (Version None)
Quarter: 2011Q2

REPORT INFORMATION
  Report Type: 
  Country: None (occurrence: None)
  Receive Date: 20110602
  Receipt Date: 20110405
  Transmission Date: 20111010
  Serious: Yes (Other)
  Sender: FDA-Public Use
  Company Number: 2011SP015162

PATIENT
  Age: 33 Year
  Sex: Female

DRUGS (1)
  1. NEXPLANON [Suspect]
     Indication: CONTRACEPTION
     Dosage: 1 DF; SC
     Route: 058
     Dates: start: 20110127, end: 20110315

REACTIONS (2)
  - MEDICAL DEVICE COMPLICATION [None]
  - ERYSIPELAS [None]
